FAERS Safety Report 5767539-8 (Version None)
Quarter: 2008Q2

REPORT INFORMATION
  Report Type: 
  Country: None (occurrence: None)
  Receive Date: 20080612
  Receipt Date: 20080604
  Transmission Date: 20081010
  Serious: Yes (Other)
  Sender: FDA-Public Use
  Company Number: US-JNJFOC-20080601676

PATIENT
  Age: 71 Year
  Sex: Male
  Weight: 90.72 kg

DRUGS (3)
  1. TYLENOL COLD MULTI-SYMPTOM DAYTIME CITRUS BURST [Suspect]
     Indication: NASOPHARYNGITIS
     Dosage: TIMES 3 DOSES, 1ST DOSE OF 3 TABLESPOONS FOLLOWED BY 2 DOSES OF 4 TABLESPOONS
     Route: 048
  2. ATENOLOL [Concomitant]
     Indication: HYPERTENSION
  3. LOMOTIL [Concomitant]
     Indication: GASTROINTESTINAL MOTILITY DISORDER

REACTIONS (3)
  - DYSURIA [None]
  - INCORRECT DOSE ADMINISTERED [None]
  - PROSTATIC DISORDER [None]
